FAERS Safety Report 15203600 (Version 3)
Quarter: 2021Q4

REPORT INFORMATION
  Report Type: Spontaneous
  Country: IT (occurrence: IT)
  Receive Date: 20180726
  Receipt Date: 20211106
  Transmission Date: 20220303
  Serious: Yes (Hospitalization, Other)
  Sender: FDA-Public Use
  Company Number: PHHY2018IT001423

PATIENT
  Age: 43 Year
  Sex: Male

DRUGS (6)
  1. PREGABALIN [Suspect]
     Active Substance: PREGABALIN
     Indication: Anxiety
     Dosage: 1800 MG, QD (300 MG/DAY WAS PRESCRIBED)
     Route: 065
  2. PREGABALIN [Suspect]
     Active Substance: PREGABALIN
     Indication: Radicular pain
  3. PREGABALIN [Suspect]
     Active Substance: PREGABALIN
     Indication: Back pain
  4. PREGABALIN [Suspect]
     Active Substance: PREGABALIN
     Indication: Alcoholism
  5. VENLAFAXINE [Concomitant]
     Active Substance: VENLAFAXINE HYDROCHLORIDE
     Indication: Anxiety disorder
     Dosage: 75 MG, QD
     Route: 065
  6. VALPROATE SODIUM [Concomitant]
     Active Substance: VALPROATE SODIUM
     Indication: Anxiety disorder
     Dosage: 500 MG, QD
     Route: 065

REACTIONS (5)
  - Drug tolerance [Recovering/Resolving]
  - Intentional product misuse [Unknown]
  - Drug abuse [Unknown]
  - Intentional overdose [Unknown]
  - Drug dependence [Unknown]
